FAERS Safety Report 14406916 (Version 3)
Quarter: 2018Q2

REPORT INFORMATION
  Report Type: Report from Study
  Country: US (occurrence: US)
  Receive Date: 20180118
  Receipt Date: 20180604
  Transmission Date: 20180711
  Serious: Yes (Hospitalization)
  Sender: FDA-Public Use
  Company Number: US-PFIZER INC-2018014618

PATIENT
  Age: 83 Year
  Sex: Female
  Weight: 45 kg

DRUGS (15)
  1. ATORVASTATIN [Concomitant]
     Active Substance: ATORVASTATIN
     Indication: BLOOD CHOLESTEROL INCREASED
     Dosage: 40 MG TDD
     Dates: start: 20161109
  2. ACETAMINOPHEN. [Concomitant]
     Active Substance: ACETAMINOPHEN
     Indication: PYREXIA
  3. ALOXI [Concomitant]
     Active Substance: PALONOSETRON HYDROCHLORIDE
     Indication: PREMEDICATION
     Dosage: 0.25 MG TDD
     Dates: start: 20171114, end: 20171114
  4. AMLODIPINE [Concomitant]
     Active Substance: AMLODIPINE BESYLATE
     Indication: HYPERTENSION
     Dosage: 0.5 MG TDD
     Dates: start: 20161109
  5. ENOXAPARIN [Concomitant]
     Active Substance: ENOXAPARIN
     Indication: THROMBOSIS PROPHYLAXIS
     Dosage: 40 MG TDD
     Dates: start: 20161109
  6. LIDOCAINE. [Concomitant]
     Active Substance: LIDOCAINE
     Indication: HYPOAESTHESIA
     Dosage: 2.5 % TDD
     Dates: start: 20171114
  7. DEXAMETHASONE. [Concomitant]
     Active Substance: DEXAMETHASONE
     Indication: PREMEDICATION
     Dosage: 10 MG TDD
     Dates: start: 20171114, end: 20171114
  8. ATROPINE. [Concomitant]
     Active Substance: ATROPINE
     Indication: HYPERTENSION
     Dosage: 0.4 MG TDD
     Dates: start: 20171114, end: 20171114
  9. COMPAZINE /00013302/ [Concomitant]
     Active Substance: PROCHLORPERAZINE EDISYLATE
     Indication: ANXIETY
     Dosage: 10 MG TDD
     Dates: start: 20171114
  10. ASPIRIN /00002701/ [Concomitant]
     Active Substance: ASPIRIN
     Indication: PAIN
     Dosage: 81 MG TDD
     Dates: start: 20161109
  11. IRINOTECAN HCL [Suspect]
     Active Substance: IRINOTECAN HYDROCHLORIDE
     Indication: SMALL CELL LUNG CANCER
     Dosage: 350 MG/M2, TOTAL DAILY DOSE, CYCLE 1
     Route: 041
     Dates: start: 20171114, end: 20171114
  12. ASPIRIN /00002701/ [Concomitant]
     Active Substance: ASPIRIN
     Indication: PYREXIA
  13. PROSTAT /00093602/ [Concomitant]
     Indication: NUTRITIONAL SUPPLEMENTATION
     Dosage: UNK
     Dates: start: 20161109
  14. ACETAMINOPHEN. [Concomitant]
     Active Substance: ACETAMINOPHEN
     Indication: PAIN
     Dosage: 325 MG TDD
     Dates: start: 20161109
  15. NEULASTA [Concomitant]
     Active Substance: PEGFILGRASTIM
     Indication: IMMUNE SYSTEM DISORDER
     Dosage: 6 MG TDD
     Dates: start: 20171114, end: 20171114

REACTIONS (3)
  - Pancytopenia [Recovered/Resolved]
  - Oesophagitis [Recovered/Resolved]
  - Clostridium difficile colitis [Recovered/Resolved]

NARRATIVE: CASE EVENT DATE: 20171121
